FAERS Safety Report 8267615-4 (Version None)
Quarter: 2012Q2

REPORT INFORMATION
  Report Type: 
  Country: None (occurrence: None)
  Receive Date: 20120409
  Receipt Date: 20120329
  Transmission Date: 20120825
  Serious: Yes (Hospitalization)
  Sender: FDA-Public Use
  Company Number: ES-ELI_LILLY_AND_COMPANY-ES201204000102

PATIENT
  Sex: Female
  Weight: 55 kg

DRUGS (10)
  1. LEXATIN [Suspect]
     Indication: ANXIETY
     Dosage: 1.5 MG, QD
     Route: 048
  2. OPIREN [Concomitant]
     Indication: GASTRITIS PROPHYLAXIS
     Dosage: 30 MG, QD
     Route: 048
  3. FLUOXETINE [Concomitant]
     Indication: DEPRESSION
     Dosage: 20 MG, QD
     Route: 048
  4. CANDESARTAN CILEXETIL [Concomitant]
     Indication: CARDIAC DISORDER
     Dosage: 16 MG, BID
     Route: 048
  5. TRAMADOL HCL [Concomitant]
     Indication: ANALGESIC THERAPY
     Dosage: 1 DF, QD
     Route: 048
  6. FORTEO [Suspect]
     Indication: OSTEOPOROSIS
     Dosage: 20 UG, QD
     Route: 058
     Dates: start: 20120129, end: 20120317
  7. SIMVASTATIN [Concomitant]
     Indication: BLOOD CHOLESTEROL
     Dosage: 40 MG, QD
     Route: 048
  8. LIBRADIN [Concomitant]
     Indication: HYPERTENSION
     Dosage: 20 MG, BID
     Route: 048
  9. CALCIUM CARBONATE [Concomitant]
     Indication: MINERAL SUPPLEMENTATION
     Dosage: UNK, QD
     Route: 048
  10. CARVEDILOL [Concomitant]
     Indication: CARDIAC DISORDER
     Dosage: UNK, OTHER
     Route: 048

REACTIONS (1)
  - CARDIAC PACEMAKER REPLACEMENT [None]
